FAERS Safety Report 8660628 (Version 3)
Quarter: 2012Q4

REPORT INFORMATION
  Report Type: 
  Country: JP (occurrence: JP)
  Receive Date: 20120711
  Receipt Date: 20121123
  Transmission Date: 20130627
  Serious: Yes (Hospitalization, Other)
  Sender: FDA-Public Use
  Company Number: JP-009507513-2012SP024420

PATIENT
  Age: 64 Year
  Sex: Female
  Weight: 46 kg

DRUGS (7)
  1. PEGINTERFERON ALFA-2B [Suspect]
     Indication: CHRONIC HEPATITIS C
     Dosage: 1.5 Microgram per kilogram, qw
     Route: 058
     Dates: start: 20120301, end: 20120419
  2. REBETOL [Suspect]
     Indication: CHRONIC HEPATITIS C
     Dosage: 600 mg, QD
     Route: 048
     Dates: start: 20120301, end: 20120418
  3. REBETOL [Suspect]
     Dosage: 200 mg, qd
     Route: 048
     Dates: start: 20120419, end: 20120424
  4. TELAVIC [Suspect]
     Indication: CHRONIC HEPATITIS C
     Dosage: 1500 milligrams per day
     Route: 048
     Dates: start: 20120301, end: 20120426
  5. ALOSITOL [Concomitant]
     Indication: HYPERURICAEMIA
     Dosage: 100 mg, QD
     Route: 048
     Dates: start: 20120309
  6. SULPIRIDE [Concomitant]
     Indication: DECREASED APPETITE
     Dosage: 150 mg, QD
     Route: 048
     Dates: start: 20120310, end: 20120322
  7. [COMPOSITION UNSPECIFIED] [Concomitant]
     Indication: HYPERGLYCAEMIA
     Dosage: 50 mg, QD
     Route: 048
     Dates: start: 20120412

REACTIONS (7)
  - Decreased appetite [Recovering/Resolving]
  - Malaise [Recovering/Resolving]
  - Haemoglobin decreased [Recovered/Resolved]
  - Hyperglycaemia [None]
  - Hyperuricaemia [None]
  - Listless [None]
  - Hypophagia [None]
